FAERS Safety Report 12241648 (Version 2)
Quarter: 2016Q2

REPORT INFORMATION
  Report Type: Report from Study
  Country: JP (occurrence: JP)
  Receive Date: 20160406
  Receipt Date: 20160429
  Transmission Date: 20160815
  Serious: Yes (Hospitalization, Other)
  Sender: FDA-Public Use
  Company Number: JP-BRISTOL-MYERS SQUIBB COMPANY-BMS-2015-017028

PATIENT
  Age: 68 Year
  Sex: Male
  Weight: 76 kg

DRUGS (13)
  1. COMESGEN [Concomitant]
     Active Substance: METHYLCOBALAMIN
     Indication: NEUROPATHY PERIPHERAL
     Dosage: 1.5 MG, QD
     Route: 048
  2. LANTUS [Concomitant]
     Active Substance: INSULIN GLARGINE
     Indication: DIABETES MELLITUS
     Dosage: 2 UNIT, QD
     Route: 058
     Dates: start: 20140403, end: 20140801
  3. BENIDIPINE HYDROCHLORIDE [Concomitant]
     Active Substance: BENIDIPINE HYDROCHLORIDE
     Indication: HYPERTENSION
     Dosage: 4 MG, QD
     Route: 048
  4. GASTER [Concomitant]
     Active Substance: FAMOTIDINE
     Indication: PROPHYLAXIS
     Dosage: 40 MG, QD
     Route: 048
  5. APIXABAN [Suspect]
     Active Substance: APIXABAN
     Indication: THROMBOSIS PROPHYLAXIS
     Dosage: 5 MG, BID
     Route: 048
     Dates: start: 20140222
  6. AIROCOOL [Concomitant]
     Indication: ANGINA PECTORIS
     Dosage: 20 MG, QD
     Route: 048
  7. JUVELA N [Concomitant]
     Active Substance: TOCOPHERYL NICOTINATE, D-.ALPHA.
     Indication: DYSLIPIDAEMIA
     Dosage: 600 MG, QD
     Route: 048
  8. SUMILU [Concomitant]
     Active Substance: FELBINAC
     Indication: ARTHRITIS
     Dosage: UNK, TID
     Route: 062
  9. JANUVIA [Concomitant]
     Active Substance: SITAGLIPTIN PHOSPHATE
     Indication: DIABETES MELLITUS
     Dosage: 25 MG, QD
     Route: 048
  10. MIDENAL L [Concomitant]
     Indication: DYSLIPIDAEMIA
     Dosage: 200 MG, QD
     Route: 048
     Dates: start: 20140604
  11. VASOLAN                            /00014302/ [Concomitant]
     Active Substance: VERAPAMIL HYDROCHLORIDE
     Indication: PRODUCT USED FOR UNKNOWN INDICATION
     Dosage: 120 MG, QD
     Route: 048
  12. SEIBULE [Concomitant]
     Active Substance: MIGLITOL
     Indication: DIABETES MELLITUS
     Dosage: 150 MG, QD
     Route: 048
  13. SELTOUCH [Concomitant]
     Active Substance: FELBINAC
     Indication: ARTHRITIS
     Dosage: 100 MG, QD
     Route: 062

REACTIONS (2)
  - Hepatocellular carcinoma [Unknown]
  - Therapeutic embolisation [Unknown]

NARRATIVE: CASE EVENT DATE: 20140704
